FAERS Safety Report 24835253 (Version 1)
Quarter: 2025Q1

REPORT INFORMATION
  Report Type: Report from Study
  Country: CO (occurrence: CO)
  Receive Date: 20250113
  Receipt Date: 20250113
  Transmission Date: 20250409
  Serious: Yes (Hospitalization, Other)
  Sender: ROCHE
  Company Number: CO-002147023-NVSC2024CO032306

PATIENT
  Age: 87 Year
  Sex: Female
  Weight: 71 kg

DRUGS (3)
  1. XOLAIR [Suspect]
     Active Substance: OMALIZUMAB
     Indication: Chronic spontaneous urticaria
     Route: 050
     Dates: start: 20240104, end: 202404
  2. XOLAIR [Suspect]
     Active Substance: OMALIZUMAB
     Route: 050
     Dates: start: 202404
  3. MESTINON [Concomitant]
     Active Substance: PYRIDOSTIGMINE BROMIDE
     Indication: Product used for unknown indication

REACTIONS (10)
  - Respiratory tract infection [Recovered/Resolved]
  - Decreased immune responsiveness [Recovered/Resolved]
  - Urticaria [Recovered/Resolved]
  - Pneumonia [Unknown]
  - Muscular weakness [Unknown]
  - Influenza [Unknown]
  - Drug ineffective [Unknown]
  - Myasthenia gravis [Unknown]
  - Urinary tract infection [Recovered/Resolved]
  - Pruritus [Unknown]

NARRATIVE: CASE EVENT DATE: 20240401
